FAERS Safety Report 10568136 (Version 2)
Quarter: 2014Q4

REPORT INFORMATION
  Report Type: Report from Study
  Country: CN (occurrence: CN)
  Receive Date: 20141106
  Receipt Date: 20141112
  Transmission Date: 20150529
  Serious: Yes (Death)
  Sender: FDA-Public Use
  Company Number: PHHY2014CN144421

PATIENT
  Age: 85 Year
  Sex: Male
  Weight: 69.5 kg

DRUGS (1)
  1. GLIVEC [Suspect]
     Active Substance: IMATINIB MESYLATE
     Indication: GASTROINTESTINAL STROMAL TUMOUR
     Dosage: 400 MG/DAY, QD
     Route: 048
     Dates: start: 201210, end: 201408

REACTIONS (6)
  - Circulatory collapse [Fatal]
  - Platelet count decreased [Unknown]
  - Respiratory failure [Fatal]
  - White blood cell count decreased [Unknown]
  - Septic shock [Fatal]
  - Haemoglobin decreased [Unknown]

NARRATIVE: CASE EVENT DATE: 20140922
